FAERS Safety Report 26179464 (Version 1)
Quarter: 2025Q4

REPORT INFORMATION
  Report Type: Spontaneous
  Country: GB (occurrence: GB)
  Receive Date: 20251219
  Receipt Date: 20251219
  Transmission Date: 20260119
  Serious: Yes (Other)
  Sender: TEVA
  Company Number: None

PATIENT
  Age: 72 Year
  Sex: Male
  Weight: 131 kg

DRUGS (17)
  1. ATORVASTATIN [Suspect]
     Active Substance: ATORVASTATIN
     Indication: Product used for unknown indication
     Route: 065
     Dates: start: 20250717
  2. LANSOPRAZOLE [Concomitant]
     Active Substance: LANSOPRAZOLE
     Indication: Product used for unknown indication
     Dosage: 1/2 AN HOUR BEFORE BREAKFAST
     Dates: start: 20230209
  3. METFORMIN [Concomitant]
     Active Substance: METFORMIN HYDROCHLORIDE
     Indication: Product used for unknown indication
     Dates: start: 20230209
  4. TOUJEO [Concomitant]
     Active Substance: INSULIN GLARGINE
     Indication: Product used for unknown indication
     Dosage: AS DIRECTED BY THE DIABETIC NURSE AT MIDYORKS
     Dates: start: 20230801
  5. ISOSORBIDE MONONITRATE [Concomitant]
     Active Substance: ISOSORBIDE MONONITRATE
     Indication: Product used for unknown indication
     Dosage: EACH MORNING
     Dates: start: 20230209
  6. COCODAMOL [Concomitant]
     Active Substance: ACETAMINOPHEN\CODEINE PHOSPHATE
     Indication: Ill-defined disorder
     Dates: start: 20250130
  7. CYCLIZINE [Concomitant]
     Active Substance: CYCLIZINE
     Indication: Product used for unknown indication
     Dosage: TIME INTERVAL: AS NECESSARY: TO BE TAKEN THREE TIMES A DAY FOR...
     Dates: start: 20230209, end: 20251211
  8. HUMALOG [Concomitant]
     Active Substance: INSULIN LISPRO
     Indication: Product used for unknown indication
     Dosage: AS DIRECTED BY THE DIABETIC NURSE SPECIALIST AT...
     Dates: start: 20230801
  9. ALBUTEROL [Concomitant]
     Active Substance: ALBUTEROL
     Indication: Product used for unknown indication
     Dosage: TIME INTERVAL: AS NECESSARY: ( ASTHMA REVIEW DUE)
     Dates: start: 20240510
  10. APIXABAN [Concomitant]
     Active Substance: APIXABAN
     Indication: Product used for unknown indication
     Dates: start: 20230209
  11. BISOPROLOL [Concomitant]
     Active Substance: BISOPROLOL
     Indication: Product used for unknown indication
     Dates: start: 20230209
  12. EPLERENONE [Concomitant]
     Active Substance: EPLERENONE
     Indication: Product used for unknown indication
     Dates: start: 20240717
  13. TIRZEPATIDE [Concomitant]
     Active Substance: TIRZEPATIDE
     Indication: Product used for unknown indication
     Dosage: USE PER WEEK AS DIRECTED FOR FOUR WEEK...
     Dates: start: 20250327
  14. BECLOMETHASONE DIPROPIONATE [Concomitant]
     Active Substance: BECLOMETHASONE DIPROPIONATE
     Indication: Ill-defined disorder
     Dosage: INHALE
     Dates: start: 20240723
  15. EZETIMIBE [Concomitant]
     Active Substance: EZETIMIBE
     Indication: Product used for unknown indication
     Dates: start: 20251211
  16. RAMIPRIL [Concomitant]
     Active Substance: RAMIPRIL
     Indication: Product used for unknown indication
     Dates: start: 20230209
  17. DIGOXIN [Concomitant]
     Active Substance: DIGOXIN
     Indication: Product used for unknown indication
     Dates: start: 20230209

REACTIONS (1)
  - Gastrooesophageal reflux disease [Recovered/Resolved]
